FAERS Safety Report 13388416 (Version 1)
Quarter: 2017Q1

REPORT INFORMATION
  Report Type: Spontaneous
  Country: US (occurrence: US)
  Receive Date: 20170330
  Receipt Date: 20170330
  Transmission Date: 20170429
  Serious: Yes (Death, Other)
  Sender: FDA-Public Use
  Company Number: US-MYLANLABS-2017M1019736

PATIENT

DRUGS (3)
  1. LIDOCAINE. [Suspect]
     Active Substance: LIDOCAINE
     Indication: TEETHING
     Dosage: 2 %; DUE TO CONFUSION BROTHER WAS ACCIDENTALLY ADDING THIS TO MILK
     Route: 048
  2. LIDOCAINE. [Suspect]
     Active Substance: LIDOCAINE
     Dosage: 2 %
     Route: 061
  3. PARACETAMOL [Concomitant]
     Active Substance: ACETAMINOPHEN
     Indication: CRYING
     Route: 065

REACTIONS (5)
  - Toxicity to various agents [Fatal]
  - Cardiac arrest [Fatal]
  - Accidental overdose [Fatal]
  - Generalised tonic-clonic seizure [Unknown]
  - Accidental exposure to product [Fatal]
